FAERS Safety Report 6163257-5 (Version None)
Quarter: 2009Q2

REPORT INFORMATION
  Report Type: 
  Country: None (occurrence: None)
  Receive Date: 20090422
  Receipt Date: 20090416
  Transmission Date: 20091009
  Serious: Yes (Hospitalization)
  Sender: FDA-Public Use
  Company Number: JP-BAYER-200911176BYL

PATIENT
  Age: 55 Year
  Sex: Female

DRUGS (7)
  1. NEXAVAR [Suspect]
     Indication: RENAL CELL CARCINOMA STAGE IV
     Dosage: UNIT DOSE: 200 MG
     Route: 048
     Dates: start: 20090317, end: 20090325
  2. LOXONIN [Concomitant]
     Route: 048
     Dates: start: 20090321, end: 20090328
  3. MUCOSTA [Concomitant]
     Route: 048
     Dates: start: 20090321, end: 20090328
  4. VOLTAREN [Concomitant]
     Route: 048
     Dates: start: 20090321, end: 20090328
  5. ASVERIN [Concomitant]
     Route: 048
     Dates: start: 20090330, end: 20090404
  6. CODEINE PHOSPHATE [Concomitant]
     Route: 048
     Dates: start: 20090404
  7. DIHYDROCODEINE PHOSPHATE [Concomitant]
     Route: 048
     Dates: start: 20090407

REACTIONS (1)
  - HEPATIC FUNCTION ABNORMAL [None]
